FAERS Safety Report 7228266-3 (Version None)
Quarter: 2011Q1

REPORT INFORMATION
  Report Type: 
  Country: None (occurrence: None)
  Receive Date: 20110114
  Receipt Date: 20110107
  Transmission Date: 20110831
  Serious: Yes (Hospitalization, Other)
  Sender: FDA-Public Use
  Company Number: US-PFIZER INC-2011004186

PATIENT
  Sex: Female
  Weight: 79.365 kg

DRUGS (9)
  1. CYMBALTA [Interacting]
     Indication: MAJOR DEPRESSION
     Dosage: 60 MG, 1X/DAY
     Route: 048
     Dates: start: 20080101, end: 20090725
  2. CLORPACTIN [Concomitant]
     Dosage: UNK
  3. ZETIA [Concomitant]
     Indication: BLOOD CHOLESTEROL INCREASED
     Dosage: UNK
  4. EFFEXOR XR [Interacting]
     Indication: MAJOR DEPRESSION
     Dosage: 150 MG, 1X/DAY
     Route: 048
     Dates: end: 20090301
  5. TOPAMAX [Concomitant]
     Indication: MIGRAINE
     Dosage: UNK
  6. ABILIFY [Suspect]
     Dosage: UNK, UNKNOWN FREQUENCY
     Route: 048
     Dates: end: 20090701
  7. ZOLOFT [Concomitant]
     Indication: MAJOR DEPRESSION
     Dosage: 200 MG, 1X/DAY
  8. ACTOS [Concomitant]
     Indication: DIABETES MELLITUS
     Dosage: UNK
  9. ASPIRIN [Concomitant]
     Dosage: 81 MG, 1X/DAY
     Route: 048

REACTIONS (17)
  - DRUG INTERACTION [None]
  - SENSORY DISTURBANCE [None]
  - IMPAIRED DRIVING ABILITY [None]
  - DIZZINESS [None]
  - FEELING ABNORMAL [None]
  - WEIGHT INCREASED [None]
  - HYPOTENSION [None]
  - PANIC ATTACK [None]
  - MUSCLE SPASMS [None]
  - WEIGHT DECREASED [None]
  - ANGINA PECTORIS [None]
  - PRURITUS [None]
  - CONTUSION [None]
  - BALANCE DISORDER [None]
  - LOSS OF LIBIDO [None]
  - ANGER [None]
  - FEAR [None]
